FAERS Safety Report 19709390 (Version 2)
Quarter: 2025Q3

REPORT INFORMATION
  Report Type: Spontaneous
  Country: US (occurrence: US)
  Receive Date: 20210817
  Receipt Date: 20250909
  Transmission Date: 20251021
  Serious: Yes (Other)
  Sender: PURDUE
  Company Number: US-PURDUE-USA-2020-0281608

PATIENT
  Sex: Male

DRUGS (3)
  1. HYDROCODONE BITARTRATE AND ACETAMINOPHEN [Suspect]
     Active Substance: ACETAMINOPHEN\HYDROCODONE BITARTRATE
     Indication: Product used for unknown indication
     Route: 048
  2. ACETAMINOPHEN\OXYCODONE HYDROCHLORIDE [Suspect]
     Active Substance: ACETAMINOPHEN\OXYCODONE HYDROCHLORIDE
     Indication: Product used for unknown indication
     Route: 048
  3. TRAMADOL [Suspect]
     Active Substance: TRAMADOL
     Indication: Product used for unknown indication
     Route: 048

REACTIONS (8)
  - Mental impairment [Unknown]
  - Drug dependence [Unknown]
  - Depression [Unknown]
  - Fear [Unknown]
  - Anger [Unknown]
  - Pain [Unknown]
  - Concussion [Unknown]
  - Delusion [Unknown]
